FAERS Safety Report 14194652 (Version 2)
Quarter: 2017Q4

REPORT INFORMATION
  Report Type: Spontaneous
  Country: US (occurrence: US)
  Receive Date: 20171116
  Receipt Date: 20171213
  Transmission Date: 20180321
  Serious: No
  Sender: FDA-Public Use
  Company Number: US-VERTEX PHARMACEUTICALS-2017-006308

PATIENT
  Age: 2 Year
  Sex: Male

DRUGS (3)
  1. ALBUTEROL                          /00139501/ [Concomitant]
     Active Substance: ALBUTEROL
  2. AQUADEKS                           /07679501/ [Concomitant]
     Active Substance: MINERALS\VITAMINS
  3. KALYDECO [Suspect]
     Active Substance: IVACAFTOR
     Indication: CYSTIC FIBROSIS
     Dosage: 50 MG, BID
     Route: 048
     Dates: start: 20171016

REACTIONS (1)
  - Dermatitis diaper [Not Recovered/Not Resolved]

NARRATIVE: CASE EVENT DATE: 201710
